FAERS Safety Report 15798476 (Version 3)
Quarter: 2019Q1

REPORT INFORMATION
  Report Type: Spontaneous
  Country: US (occurrence: US)
  Receive Date: 20190108
  Receipt Date: 20190120
  Transmission Date: 20190417
  Serious: No
  Sender: FDA-Public Use
  Company Number: US-JNJFOC-20181225526

PATIENT
  Age: 75 Year
  Sex: Female
  Weight: 56.7 kg

DRUGS (2)
  1. XARELTO [Suspect]
     Active Substance: RIVAROXABAN
     Indication: ATRIAL FIBRILLATION
     Route: 048
     Dates: start: 201304
  2. XARELTO [Suspect]
     Active Substance: RIVAROXABAN
     Indication: CEREBROVASCULAR ACCIDENT PROPHYLAXIS
     Route: 048
     Dates: start: 201304

REACTIONS (3)
  - Decreased appetite [Not Recovered/Not Resolved]
  - Skin laceration [Unknown]
  - Body height decreased [Unknown]

NARRATIVE: CASE EVENT DATE: 20181218
